FAERS Safety Report 16344958 (Version 1)
Quarter: 2019Q2

REPORT INFORMATION
  Report Type: Spontaneous
  Country: US (occurrence: US)
  Receive Date: 20190522
  Receipt Date: 20190522
  Transmission Date: 20190711
  Serious: No
  Sender: FDA-Public Use
  Company Number: US-CELGENEUS-USA-20190505028

PATIENT
  Age: 71 Year
  Sex: Male
  Weight: 118 kg

DRUGS (1)
  1. VIDAZA [Suspect]
     Active Substance: AZACITIDINE
     Indication: MYELODYSPLASTIC SYNDROME
     Dosage: ONCE EVERY 4 WEEKS
     Route: 058
     Dates: start: 201811

REACTIONS (4)
  - Injection site erythema [Recovered/Resolved]
  - Product reconstitution quality issue [Unknown]
  - Pneumonia [Not Recovered/Not Resolved]
  - Injection site pain [Recovered/Resolved]

NARRATIVE: CASE EVENT DATE: 201811
